FAERS Safety Report 11586200 (Version 1)
Quarter: 2015Q3

REPORT INFORMATION
  Report Type: Spontaneous
  Country: US (occurrence: US)
  Receive Date: 20150916
  Receipt Date: 20150916
  Transmission Date: 20151125
  Serious: No
  Sender: FDA-Public Use
  Company Number: US-ELI_LILLY_AND_COMPANY-US200803005397

PATIENT
  Sex: Female

DRUGS (4)
  1. MAGNESIUM [Concomitant]
     Active Substance: MAGNESIUM
  2. FORTEO [Suspect]
     Active Substance: TERIPARATIDE
     Dates: start: 200802
  3. MINERAL SUPPLEMENTS [Concomitant]
     Active Substance: UNSPECIFIED INGREDIENT
  4. CALCIUM [Concomitant]
     Active Substance: CALCIUM
     Dosage: 500 MG, UNK

REACTIONS (8)
  - Limb discomfort [Not Recovered/Not Resolved]
  - Paraesthesia [Not Recovered/Not Resolved]
  - Lyme disease [Not Recovered/Not Resolved]
  - Eye pain [Not Recovered/Not Resolved]
  - Pain [Not Recovered/Not Resolved]
  - Pain in extremity [Not Recovered/Not Resolved]
  - Fatigue [Not Recovered/Not Resolved]
  - Balance disorder [Not Recovered/Not Resolved]

NARRATIVE: CASE EVENT DATE: 200802
